FAERS Safety Report 8782683 (Version 1)
Quarter: 2012Q4

REPORT INFORMATION
  Report Type: 
  Country: US (occurrence: US)
  Receive Date: 20120913
  Receipt Date: 20120913
  Transmission Date: 20130627
  Serious: Yes (Other)
  Sender: FDA-Public Use
  Company Number: US-ASTRAZENECA-2012SE70236

PATIENT
  Age: 55 Year
  Sex: Female

DRUGS (4)
  1. NEXIUM [Suspect]
     Route: 048
  2. PRILOSEC [Suspect]
     Route: 048
  3. TAMOXIFEN [Suspect]
     Route: 065
  4. TUMS [Concomitant]

REACTIONS (5)
  - Gastric perforation [Unknown]
  - Dyspepsia [Unknown]
  - Oesophageal ulcer [Unknown]
  - Osteoporosis [Unknown]
  - Drug dose omission [Unknown]
